FAERS Safety Report 24400919 (Version 1)
Quarter: 2024Q4

REPORT INFORMATION
  Report Type: Spontaneous
  Country: US (occurrence: US)
  Receive Date: 20241006
  Receipt Date: 20241006
  Transmission Date: 20250114
  Serious: Yes (Other)
  Sender: DR REDDYS
  Company Number: US-drreddys-SPO/USA/23/0177158

PATIENT
  Age: 66 Year
  Sex: Female

DRUGS (1)
  1. CLOZAPINE [Suspect]
     Active Substance: CLOZAPINE
     Indication: Product used for unknown indication
     Route: 065

REACTIONS (3)
  - Neutropenia [Unknown]
  - Neutrophil count normal [Unknown]
  - No adverse event [Unknown]

NARRATIVE: CASE EVENT DATE: 20230902
